FAERS Safety Report 13345547 (Version 2)
Quarter: 2017Q2

REPORT INFORMATION
  Report Type: Spontaneous
  Country: TW (occurrence: TW)
  Receive Date: 20170317
  Receipt Date: 20170425
  Transmission Date: 20170830
  Serious: Yes (Hospitalization)
  Sender: FDA-Public Use
  Company Number: TW-ASTELLAS-2017US010462

PATIENT
  Sex: Female

DRUGS (4)
  1. PROGRAF [Suspect]
     Active Substance: TACROLIMUS\TACROLIMUS ANHYDROUS
     Dosage: 14 MG, TWICE DAILY
     Route: 048
     Dates: start: 20170220, end: 201703
  2. PROGRAF [Suspect]
     Active Substance: TACROLIMUS\TACROLIMUS ANHYDROUS
     Dosage: 18 MG, TWICE DAILY
     Route: 048
     Dates: start: 201703
  3. PROGRAF [Suspect]
     Active Substance: TACROLIMUS\TACROLIMUS ANHYDROUS
     Indication: RENAL TRANSPLANT
     Dosage: 6 MG, TWICE DAILY
     Route: 048
     Dates: start: 20170106, end: 20170220
  4. MYCOPHENOLATE MOFETIL. [Concomitant]
     Active Substance: MYCOPHENOLATE MOFETIL
     Indication: RENAL TRANSPLANT
     Dosage: UNK UNK, UNKNOWN FREQ.
     Route: 050
     Dates: start: 20170106

REACTIONS (3)
  - Immunosuppressant drug level decreased [Recovered/Resolved]
  - Product quality issue [Unknown]
  - Transplant rejection [Unknown]

NARRATIVE: CASE EVENT DATE: 2017
